FAERS Safety Report 9110317 (Version 2)
Quarter: 2014Q3

REPORT INFORMATION
  Report Type: Report from Study
  Country: CA (occurrence: CA)
  Receive Date: 20130222
  Receipt Date: 20140918
  Transmission Date: 20150326
  Serious: Yes (Other)
  Sender: FDA-Public Use
  Company Number: CA-PFIZER INC-2013060262

PATIENT

DRUGS (5)
  1. VINBLASTINE [Suspect]
     Active Substance: VINBLASTINE
     Dosage: 5 MG/M2, WEEKLY (DL2)
     Route: 040
  2. VINBLASTINE [Suspect]
     Active Substance: VINBLASTINE
     Dosage: 6 MG/M2, WEEKLY (DL3)
     Route: 040
  3. VINBLASTINE [Suspect]
     Active Substance: VINBLASTINE
     Indication: NEOPLASM
     Dosage: 4 MG/M2, WEEKLY (DL1)
     Route: 040
  4. RAPAMUNE [Suspect]
     Active Substance: SIROLIMUS
     Indication: NEOPLASM
     Dosage: 0.42 MG/KG, 1X/DAY
     Route: 048
  5. RAPAMUNE [Suspect]
     Active Substance: SIROLIMUS
     Dosage: 0.14 MG/KG, DAILY
     Route: 048

REACTIONS (1)
  - Cholecystitis acute [Unknown]
